FAERS Safety Report 4634063-5 (Version None)
Quarter: 2005Q2

REPORT INFORMATION
  Report Type: 
  Country: None (occurrence: None)
  Receive Date: 20050413
  Receipt Date: 20050404
  Transmission Date: 20051028
  Serious: Yes (Hospitalization)
  Sender: FDA-Public Use
  Company Number: US-ROCHE-401009

PATIENT
  Age: 59 Year
  Sex: Female
  Weight: 66.7 kg

DRUGS (9)
  1. VALIUM [Suspect]
     Indication: ANXIETY
     Dosage: TABLET STRENGTH = 10 MG. 10 MG TAKEN AT 16:00 HOURS AND 15 MG TAKEN AT 21:00 HOURS.
     Route: 048
     Dates: start: 20050315, end: 20050315
  2. VALIUM [Suspect]
     Dosage: TABLET STRENGTH = 5 MG.
     Route: 048
     Dates: start: 20040615, end: 20040715
  3. VALIUM [Suspect]
     Route: 048
     Dates: start: 20040715
  4. VALIUM [Suspect]
     Dosage: TABLET STRENGTH = 5 MG.
     Route: 048
     Dates: start: 20050320
  5. VASOTEC [Concomitant]
  6. LASIX [Concomitant]
  7. ZOCOR [Concomitant]
  8. PAXIL [Concomitant]
  9. INSULIN [Concomitant]

REACTIONS (8)
  - DEHYDRATION [None]
  - DIARRHOEA [None]
  - DYSARTHRIA [None]
  - FEELING ABNORMAL [None]
  - HYPOTENSION [None]
  - LOSS OF CONSCIOUSNESS [None]
  - MEDICATION ERROR [None]
  - SOMNOLENCE [None]
